FAERS Safety Report 5319382-1 (Version None)
Quarter: 2007Q2

REPORT INFORMATION
  Report Type: 
  Country: None (occurrence: None)
  Receive Date: 20070508
  Receipt Date: 20070503
  Transmission Date: 20071010
  Serious: Yes (Disabling, Other)
  Sender: FDA-Public Use
  Company Number: US-ELI_LILLY_AND_COMPANY-US200705001428

PATIENT
  Age: 56 Year
  Sex: Male

DRUGS (1)
  1. HUMULIN N [Suspect]
     Dates: start: 20070430

REACTIONS (5)
  - ADVERSE DRUG REACTION [None]
  - BLOOD GLUCOSE INCREASED [None]
  - DYSARTHRIA [None]
  - MONOPLEGIA [None]
  - VASODILATATION [None]
